FAERS Safety Report 6750600-9 (Version None)
Quarter: 2010Q2

REPORT INFORMATION
  Report Type: 
  Country: None (occurrence: None)
  Receive Date: 20100528
  Receipt Date: 20100528
  Transmission Date: 20101027
  Serious: Yes (Other)
  Sender: FDA-Public Use
  Company Number: None

PATIENT
  Sex: Female

DRUGS (1)
  1. PREDNISONE [Suspect]
     Indication: EAR DISORDER
     Dosage: 2 EVERY MORNING
     Dates: start: 20100430

REACTIONS (2)
  - PRURITUS [None]
  - RASH [None]
